FAERS Safety Report 6021826-7 (Version None)
Quarter: 2008Q4

REPORT INFORMATION
  Report Type: 
  Country: None (occurrence: None)
  Receive Date: 20081229
  Receipt Date: 20081218
  Transmission Date: 20090506
  Serious: Yes (Other)
  Sender: FDA-Public Use
  Company Number: US-BAXTER-2008BH013418

PATIENT
  Age: 41 Year
  Sex: Female

DRUGS (2)
  1. DIANEAL [Suspect]
     Indication: PERITONEAL DIALYSIS
     Route: 033
     Dates: start: 20081206, end: 20081212
  2. DIANEAL [Suspect]
     Route: 033
     Dates: start: 20081110, end: 20081126

REACTIONS (1)
  - CATHETER RELATED COMPLICATION [None]
